FAERS Safety Report 8193549-X (Version None)
Quarter: 2012Q1

REPORT INFORMATION
  Report Type: 
  Country: None (occurrence: None)
  Receive Date: 20120308
  Receipt Date: 20120227
  Transmission Date: 20120608
  Serious: No
  Sender: FDA-Public Use
  Company Number: KR-JNJFOC-20120300828

PATIENT
  Age: 73 Year
  Sex: Female

DRUGS (5)
  1. ANALGESICS [Concomitant]
     Route: 065
  2. UNKNOWN MEDICATION [Concomitant]
     Indication: CEREBRAL DISORDER
     Route: 065
  3. UNSPECIFIED TRANQUILIZERS [Concomitant]
     Indication: SEDATION
     Route: 065
  4. DURAGESIC-100 [Suspect]
     Indication: PAIN MANAGEMENT
     Route: 062
     Dates: start: 20110201, end: 20120227
  5. LAXATIVES [Concomitant]
     Route: 065

REACTIONS (6)
  - DIZZINESS [None]
  - INAPPROPRIATE SCHEDULE OF DRUG ADMINISTRATION [None]
  - HEADACHE [None]
  - WRONG TECHNIQUE IN DRUG USAGE PROCESS [None]
  - DRUG DOSE OMISSION [None]
  - VOMITING [None]
